FAERS Safety Report 9230487 (Version 1)
Quarter: 2013Q1

REPORT INFORMATION
  Report Type: Spontaneous
  Country: US (occurrence: None)
  Receive Date: 20121019
  Receipt Date: 20121019
  Transmission Date: 20140127
  Serious: Yes (Other)
  Sender: FDA-Public Use
  Company Number: 2011P1015176

PATIENT
  Age: 54 Year
  Sex: Male
  Weight: 111.13 kg

DRUGS (4)
  1. FENTANYL PATCH 100 MCG/HR (NO PREF. NAME) [Suspect]
     Indication: PAIN
     Dosage: 1 PATCH; X1; TDER
     Route: 062
     Dates: start: 20111223, end: 201112
  2. OXYCONTIN (NO PREF. NAME) [Suspect]
     Dosage: 80 MG; Q6H; PO
     Route: 048
  3. PERCOCET 10/325 MG (NO PREF. NAME) [Concomitant]
     Dosage: 2 TABLETS; Q4H; PO
     Route: 048
  4. DILAUDID [Concomitant]

REACTIONS (8)
  - Drug ineffective [None]
  - Headache [None]
  - Dysarthria [None]
  - Incoherent [None]
  - Drug effect increased [None]
  - Hallucination [None]
  - Product adhesion issue [None]
  - Wrong technique in drug usage process [None]
